FAERS Safety Report 13618176 (Version 2)
Quarter: 2017Q2

REPORT INFORMATION
  Report Type: Spontaneous
  Country: DE (occurrence: DE)
  Receive Date: 20170606
  Receipt Date: 20170609
  Transmission Date: 20170830
  Serious: Yes (Hospitalization, Other)
  Sender: FDA-Public Use
  Company Number: DE-009507513-1706DEU001070

PATIENT
  Sex: Female

DRUGS (1)
  1. XELEVIA [Suspect]
     Active Substance: SITAGLIPTIN PHOSPHATE
     Route: 048

REACTIONS (16)
  - Metastases to lymph nodes [Unknown]
  - Hepatic steatosis [Unknown]
  - Duodenal ulcer [Unknown]
  - Diverticulitis [Recovered/Resolved]
  - Varicose vein [Unknown]
  - Hypertension [Unknown]
  - Gastritis [Unknown]
  - Depression [Unknown]
  - Metastases to peritoneum [Unknown]
  - Adrenal gland cancer [Unknown]
  - Type 2 diabetes mellitus [Unknown]
  - Weight decreased [Unknown]
  - Pancreatic carcinoma metastatic [Unknown]
  - Metastases to spleen [Unknown]
  - Thrombophlebitis [Unknown]
  - Pancreatic carcinoma [Unknown]

NARRATIVE: CASE EVENT DATE: 2017
